FAERS Safety Report 13999062 (Version 1)
Quarter: 2017Q3

REPORT INFORMATION
  Report Type: Spontaneous
  Country: US (occurrence: US)
  Receive Date: 20170922
  Receipt Date: 20170922
  Transmission Date: 20171128
  Serious: No
  Sender: FDA-Public Use
  Company Number: None

PATIENT
  Sex: Male
  Weight: 35.6 kg

DRUGS (1)
  1. ATAMOXATINE [Suspect]
     Active Substance: ATOMOXETINE
     Indication: ATTENTION DEFICIT/HYPERACTIVITY DISORDER
     Route: 048
     Dates: start: 20170616, end: 20170814

REACTIONS (4)
  - Loss of personal independence in daily activities [None]
  - Product substitution issue [None]
  - Memory impairment [None]
  - Drug ineffective [None]
